FAERS Safety Report 26185978 (Version 1)
Quarter: 2025Q4

REPORT INFORMATION
  Report Type: Spontaneous
  Country: GB (occurrence: GB)
  Receive Date: 20251222
  Receipt Date: 20251222
  Transmission Date: 20260118
  Serious: Yes (Hospitalization)
  Sender: MYLAN
  Company Number: GB-MYLANLABS-2024M1091681

PATIENT
  Age: 32 Year
  Sex: Male

DRUGS (6)
  1. DIAZEPAM [Suspect]
     Active Substance: DIAZEPAM
     Indication: Depression
     Dosage: 70 DOSAGE FORM; INGESTED 70 TABLETS, A TOTAL DOSE 350MG,  ESTIMATED INGESTED MAXIMUM 350MG
     Route: 061
  2. VORTIOXETINE [Suspect]
     Active Substance: VORTIOXETINE
     Indication: Depression
     Dosage: 63 DOSAGE FORM;~INGESTED 63 TABLETS, A TOTAL DOSE 1260MG, ESTIMATED INGESTED MAXIMUM 1260MG
     Route: 061
  3. RAMIPRIL [Concomitant]
     Active Substance: RAMIPRIL
     Indication: Product used for unknown indication
     Dosage: UNK
  4. TESTOSTERONE CYPIONATE [Concomitant]
     Active Substance: TESTOSTERONE CYPIONATE
     Indication: Blood testosterone decreased
     Dosage: UNK
  5. CHORIONIC GONADOTROPIN [Concomitant]
     Active Substance: CHORIOGONADOTROPIN ALFA
     Indication: Blood testosterone decreased
     Dosage: UNK
  6. EXEMESTANE [Concomitant]
     Active Substance: EXEMESTANE
     Indication: Product used for unknown indication
     Dosage: UNK

REACTIONS (3)
  - Intentional overdose [Unknown]
  - Alanine aminotransferase [Unknown]
  - Somnolence [Unknown]
